FAERS Safety Report 7555047-3 (Version None)
Quarter: 2011Q2

REPORT INFORMATION
  Report Type: 
  Country: None (occurrence: None)
  Receive Date: 20110617
  Receipt Date: 20110608
  Transmission Date: 20111010
  Serious: Yes (Other)
  Sender: FDA-Public Use
  Company Number: US-AMGEN-USASP2011029683

PATIENT
  Age: 26 Year
  Sex: Female

DRUGS (2)
  1. PREDNISONE [Concomitant]
  2. ENBREL [Suspect]
     Indication: RHEUMATOID ARTHRITIS
     Dosage: 50 MG, QWK
     Dates: start: 20100302

REACTIONS (5)
  - PAIN [None]
  - RASH ERYTHEMATOUS [None]
  - IRITIS [None]
  - NAUSEA [None]
  - HEADACHE [None]
